FAERS Safety Report 10438761 (Version 1)
Quarter: 2014Q3

REPORT INFORMATION
  Report Type: Spontaneous
  Country: CA (occurrence: CA)
  Receive Date: 20140908
  Receipt Date: 20140908
  Transmission Date: 20150326
  Serious: Yes (Other)
  Sender: FDA-Public Use
  Company Number: PHHY2014CA110135

PATIENT
  Sex: Female

DRUGS (1)
  1. IRBESARTAN SANDOZ [Suspect]
     Active Substance: IRBESARTAN

REACTIONS (4)
  - Product substitution issue [Unknown]
  - Hypertension [Unknown]
  - Cough [Unknown]
  - Nausea [Unknown]
